FAERS Safety Report 8971382 (Version 1)
Quarter: 2012Q4

REPORT INFORMATION
  Report Type: 
  Country: FR (occurrence: FR)
  Receive Date: 20121218
  Receipt Date: 20121218
  Transmission Date: 20130627
  Serious: Yes (Other)
  Sender: FDA-Public Use
  Company Number: FR-B.I. PHARMACEUTICALS,INC./RIDGEFIELD-2012-FF-01962FF

PATIENT
  Age: 58 Year
  Sex: Female

DRUGS (8)
  1. PRADAXA [Suspect]
     Indication: ATRIAL FIBRILLATION
     Dosage: 300 mg
     Route: 048
     Dates: start: 20121001, end: 20121015
  2. FLECAINE [Concomitant]
     Route: 048
     Dates: start: 2011
  3. PANTOPRAZOLE [Concomitant]
     Dates: start: 2011
  4. STABLON [Concomitant]
  5. LEVOTHYROX [Concomitant]
     Dates: start: 2010
  6. AVLOCARDYL [Concomitant]
     Dates: start: 2009
  7. UVEDOSE [Concomitant]
  8. ZOPICLONE [Concomitant]

REACTIONS (1)
  - Hepatitis [Recovered/Resolved]
